FAERS Safety Report 9429958 (Version 2)
Quarter: 2013Q3

REPORT INFORMATION
  Report Type: Spontaneous
  Country: GB (occurrence: GB)
  Receive Date: 20130730
  Receipt Date: 20130911
  Transmission Date: 20140515
  Serious: Yes (Other)
  Sender: FDA-Public Use
  Company Number: GB-GLAXOSMITHKLINE-B0908015A

PATIENT
  Age: 37 Year
  Sex: Male

DRUGS (2)
  1. NIQUITIN MINI 4MG MINT LOZENGES [Suspect]
     Indication: EX-TOBACCO USER
     Dosage: 4MG PER DAY
     Route: 002
     Dates: start: 20130714, end: 20130714
  2. COCODAMOL [Concomitant]

REACTIONS (6)
  - Myocardial infarction [Unknown]
  - Chest pain [Recovered/Resolved]
  - Throat irritation [Unknown]
  - Throat tightness [Unknown]
  - Chest discomfort [Unknown]
  - Product quality issue [Unknown]
